FAERS Safety Report 10143603 (Version 1)
Quarter: 2014Q2

REPORT INFORMATION
  Report Type: Spontaneous
  Country: US (occurrence: US)
  Receive Date: 20140430
  Receipt Date: 20140430
  Transmission Date: 20141212
  Serious: No
  Sender: FDA-Public Use
  Company Number: US-B.I. PHARMACEUTICALS,INC./RIDGEFIELD-2014-BI-18552PF

PATIENT
  Sex: Female

DRUGS (6)
  1. SPIRIVA [Suspect]
     Indication: PRODUCT USED FOR UNKNOWN INDICATION
     Route: 065
  2. LYRICA [Concomitant]
     Dosage: 16.6667 MG
     Route: 048
  3. NORCO 7.5 [Concomitant]
     Route: 065
  4. ESCITALOPRAM OXALATE [Concomitant]
     Route: 065
  5. MOBIC [Concomitant]
     Route: 065
  6. TRAMADOL [Concomitant]
     Route: 065

REACTIONS (1)
  - Drug hypersensitivity [Unknown]
